FAERS Safety Report 24237245 (Version 2)
Quarter: 2024Q3

REPORT INFORMATION
  Report Type: Spontaneous
  Country: IT (occurrence: IT)
  Receive Date: 20240822
  Receipt Date: 20240830
  Transmission Date: 20241016
  Serious: Yes (Hospitalization, Other)
  Sender: BAXTER
  Company Number: IT-EMA-DD-20240808-7482705-095253

PATIENT
  Sex: Male
  Weight: 88.7 kg

DRUGS (14)
  1. CYCLOPHOSPHAMIDE [Suspect]
     Active Substance: CYCLOPHOSPHAMIDE
     Indication: Focal segmental glomerulosclerosis
     Dosage: 100 MG, DAILY [100MG/DAY FOR 6 MONTHS]
     Route: 065
     Dates: start: 199803, end: 199810
  2. CYCLOSPORINE [Suspect]
     Active Substance: CYCLOSPORINE
     Indication: Focal segmental glomerulosclerosis
     Dosage: 3 MG/KG MILLIGRAM(S)/KILOGRAM [FOR 11 MONTHS]
     Route: 048
     Dates: start: 199610, end: 199711
  3. PREDNISONE [Suspect]
     Active Substance: PREDNISONE
     Indication: Focal segmental glomerulosclerosis
     Dosage: 25 MG, ON ALTERNATE DAYS
     Route: 065
     Dates: start: 199610
  4. PREDNISONE [Suspect]
     Active Substance: PREDNISONE
     Dosage: 1MG/KG/DAY TRIAL BEGUN
     Route: 065
     Dates: start: 1998
  5. PREDNISONE [Suspect]
     Active Substance: PREDNISONE
     Dosage: GRADUAL TAPERING STARTED
     Route: 065
     Dates: start: 199803
  6. PREDNISONE [Suspect]
     Active Substance: PREDNISONE
     Dosage: STEROID THERAPY 1MG/KG/DAY WAS RESTORED
     Route: 065
     Dates: start: 199803
  7. ALLOPURINOL [Concomitant]
     Active Substance: ALLOPURINOL
     Route: 065
  8. FUROSEMIDE [Concomitant]
     Active Substance: FUROSEMIDE
     Dosage: 50 MG/DAY
     Route: 048
     Dates: start: 199510
  9. ENALAPRIL [Concomitant]
     Active Substance: ENALAPRIL
     Dosage: 10 MG/DAY
     Route: 065
     Dates: end: 199510
  10. ENALAPRIL [Concomitant]
     Active Substance: ENALAPRIL
     Dosage: 20 MG/DAY
     Route: 065
     Dates: start: 199510
  11. NIFEDIPINE [Concomitant]
     Active Substance: NIFEDIPINE
     Route: 065
  12. ATENOLOL [Concomitant]
     Active Substance: ATENOLOL
     Route: 065
  13. ALBUMIN HUMAN;FUROSEMIDE [Concomitant]
     Dosage: INFUSION OF FUROSEMIDE-ALBUMIN COMPLEX
     Route: 065
     Dates: start: 199801, end: 1998
  14. WHOLE BLOOD [Concomitant]
     Active Substance: WHOLE BLOOD
     Dosage: TRANSFUSION
     Route: 065

REACTIONS (4)
  - Kaposi^s sarcoma [Recovered/Resolved]
  - Discomfort [Recovered/Resolved]
  - Skin lesion [Recovered/Resolved]
  - Rash maculo-papular [Recovered/Resolved]
